FAERS Safety Report 8145611-5 (Version None)
Quarter: 2012Q1

REPORT INFORMATION
  Report Type: 
  Country: None (occurrence: None)
  Receive Date: 20120217
  Receipt Date: 20120213
  Transmission Date: 20120608
  Serious: Yes (Death, Hospitalization, Other)
  Sender: FDA-Public Use
  Company Number: US-CELGENEUS-163-20785-12021481

PATIENT
  Sex: Male

DRUGS (2)
  1. OPIUM [Concomitant]
     Route: 065
  2. THALOMID [Suspect]
     Indication: MULTIPLE MYELOMA
     Dosage: 100 MILLIGRAM
     Route: 048
     Dates: start: 20100401

REACTIONS (4)
  - FEMUR FRACTURE [None]
  - DEATH [None]
  - HAEMATEMESIS [None]
  - URTICARIA [None]
